FAERS Safety Report 9681408 (Version 1)
Quarter: 2013Q4

REPORT INFORMATION
  Report Type: Spontaneous
  Country: US (occurrence: US)
  Receive Date: 20131111
  Receipt Date: 20131111
  Transmission Date: 20140711
  Serious: Yes (Hospitalization, Other)
  Sender: FDA-Public Use
  Company Number: US-ELI_LILLY_AND_COMPANY-US201310010026

PATIENT
  Sex: Female

DRUGS (7)
  1. FORTEO [Suspect]
     Indication: OSTEOPOROSIS
     Dosage: UNK, QD
     Route: 065
  2. PREDNISONE [Concomitant]
     Indication: PRODUCT USED FOR UNKNOWN INDICATION
     Route: 065
  3. DETROL [Concomitant]
     Indication: PRODUCT USED FOR UNKNOWN INDICATION
     Dosage: 1 UG, OTHER
     Route: 065
  4. LEVOTHYROXINE [Concomitant]
     Indication: PRODUCT USED FOR UNKNOWN INDICATION
     Dosage: 100 UG, QOD
     Route: 065
  5. LEVOTHYROXINE [Concomitant]
     Dosage: 112 UG, QOD
     Route: 065
  6. SIMVASTATIN [Concomitant]
     Indication: PRODUCT USED FOR UNKNOWN INDICATION
     Dosage: 10 MG, QD
     Route: 065
  7. CEPHALEXIN                         /00145501/ [Concomitant]
     Dosage: 500 MG, TID
     Route: 065

REACTIONS (11)
  - Spinal column stenosis [Unknown]
  - Squamous cell carcinoma [Unknown]
  - Diabetes mellitus [Unknown]
  - Blood glucose increased [Unknown]
  - Micturition urgency [Recovering/Resolving]
  - Muscular weakness [Recovering/Resolving]
  - Muscle spasms [Unknown]
  - Malaise [Unknown]
  - Drug intolerance [Unknown]
  - Injury [Unknown]
  - Infection [Unknown]
